FAERS Safety Report 25333497 (Version 3)
Quarter: 2025Q4

REPORT INFORMATION
  Report Type: Spontaneous
  Country: AU (occurrence: AU)
  Receive Date: 20250520
  Receipt Date: 20251222
  Transmission Date: 20260117
  Serious: Yes (Life-Threatening, Other)
  Sender: PIRAMAL
  Company Number: AU-MLMSERVICE-20250509-PI484454-00145-2

PATIENT

DRUGS (15)
  1. FENTANYL [Suspect]
     Active Substance: FENTANYL
     Indication: Induction of anaesthesia
     Dosage: 2 MICROGRAM/KILOGRAM
  2. ALFENTANIL [Suspect]
     Active Substance: ALFENTANIL
     Indication: Sedation
     Dosage: 0.45 MILLIGRAM
     Route: 042
  3. SEVOFLURANE [Suspect]
     Active Substance: SEVOFLURANE
     Indication: Induction of anaesthesia
     Dosage: 0.8 MINIMUM ALVEOLAR CONCENTRATION
  4. PROPOFOL [Suspect]
     Active Substance: PROPOFOL
     Indication: Sedation
     Dosage: 450 MILLIGRAM
     Route: 042
  5. THIOPENTAL [Suspect]
     Active Substance: THIOPENTAL
     Indication: Anaesthesia
     Dosage: 5 MILLIGRAM/KILOGRAM
  6. ROPIVACAINE [Suspect]
     Active Substance: ROPIVACAINE
     Indication: Induction of anaesthesia
     Dosage: 200 MILLIGRAM
  7. OXYGEN [Concomitant]
     Active Substance: OXYGEN
     Indication: Product used for unknown indication
     Dosage: UNK
  8. VECURONIUM [Concomitant]
     Active Substance: VECURONIUM BROMIDE
     Indication: Hypotonia
     Dosage: 100 MILLIGRAM
  9. DEXAMETHASONE [Concomitant]
     Active Substance: DEXAMETHASONE
     Indication: Product used for unknown indication
     Dosage: 8 MILLIGRAM
  10. ONDANSETRON [Concomitant]
     Active Substance: ONDANSETRON
     Indication: Product used for unknown indication
     Dosage: 4 MILLIGRAM
  11. PARECOXIB [Concomitant]
     Active Substance: PARECOXIB
     Indication: Product used for unknown indication
     Dosage: 40 MILLIGRAM
  12. ACETAMINOPHEN [Concomitant]
     Active Substance: ACETAMINOPHEN
     Indication: Product used for unknown indication
     Dosage: 1 GRAM
  13. SUGAMMADEX [Concomitant]
     Active Substance: SUGAMMADEX
     Indication: Product used for unknown indication
     Dosage: 200 MILLIGRAM
  14. NALOXONE [Concomitant]
     Active Substance: NALOXONE
     Indication: Product used for unknown indication
     Dosage: 400 MILLIGRAM
  15. FLUMAZENIL [Concomitant]
     Active Substance: FLUMAZENIL
     Indication: Product used for unknown indication
     Dosage: 0.5 MILLIGRAM

REACTIONS (2)
  - Delayed recovery from anaesthesia [Recovered/Resolved]
  - Delayed recovery from anaesthesia [Recovered/Resolved]
